FAERS Safety Report 4880047-1 (Version None)
Quarter: 2005Q4

REPORT INFORMATION
  Report Type: 
  Country: None (occurrence: None)
  Receive Date: 20051223
  Receipt Date: 20050901
  Transmission Date: 20060501
  Serious: Yes (Hospitalization)
  Sender: FDA-Public Use
  Company Number: 05P-163-0310074-00

PATIENT
  Age: 74 Year
  Sex: Female
  Weight: 54.4316 kg

DRUGS (9)
  1. HUMIRA [Suspect]
     Indication: RHEUMATOID ARTHRITIS
     Dosage: SEE IMAGE
     Route: 058
     Dates: start: 20040901, end: 20050301
  2. HUMIRA [Suspect]
     Indication: RHEUMATOID ARTHRITIS
     Dosage: SEE IMAGE
     Route: 058
     Dates: start: 20050301, end: 20050601
  3. HUMIRA [Suspect]
     Indication: RHEUMATOID ARTHRITIS
     Dosage: SEE IMAGE
     Route: 058
     Dates: start: 20050701
  4. PREDNISONE [Concomitant]
  5. PROPRANOLOL HYDROCHLORIDE [Concomitant]
  6. RISEDRONATE SODIUM [Concomitant]
  7. POTASSIUM [Concomitant]
  8. HYDROCHLOROTHIAZIDE [Concomitant]
  9. THYROID TAB [Concomitant]

REACTIONS (5)
  - DRUG INEFFECTIVE [None]
  - INJECTION SITE PAIN [None]
  - INJECTION SITE REACTION [None]
  - OVARIAN INFECTION [None]
  - UTERINE INFECTION [None]
